FAERS Safety Report 6756905-X (Version None)
Quarter: 2010Q2

REPORT INFORMATION
  Report Type: 
  Country: None (occurrence: None)
  Receive Date: 20100604
  Receipt Date: 20100524
  Transmission Date: 20101027
  Serious: Yes (Death, Hospitalization, Other)
  Sender: FDA-Public Use
  Company Number: US-PFIZER INC-2010064835

PATIENT
  Age: 48 Year
  Sex: Female

DRUGS (1)
  1. HEPARIN SODIUM [Suspect]
     Indication: PULMONARY EMBOLISM
     Route: 041

REACTIONS (4)
  - ADRENAL INSUFFICIENCY [None]
  - HEPARIN-INDUCED THROMBOCYTOPENIA [None]
  - SEPTIC SHOCK [None]
  - SKIN NECROSIS [None]
